FAERS Safety Report 19801620 (Version 1)
Quarter: 2021Q3

REPORT INFORMATION
  Report Type: Other
  Country: GB (occurrence: GB)
  Receive Date: 20210907
  Receipt Date: 20210907
  Transmission Date: 20211014
  Serious: Yes (Other)
  Sender: FDA-Public Use
  Company Number: GB-STRIDES ARCOLAB LIMITED-2021SP027197

PATIENT
  Age: 1 Year
  Sex: Male
  Weight: 9.5 kg

DRUGS (5)
  1. DOCUSATE SODIUM. [Concomitant]
     Active Substance: DOCUSATE SODIUM
     Indication: ILL-DEFINED DISORDER
     Dosage: UNK
     Route: 065
  2. BACLOFEN. [Concomitant]
     Active Substance: BACLOFEN
     Indication: ILL-DEFINED DISORDER
     Dosage: UNK
     Route: 065
  3. OMEPRAZOLE SODIUM [Concomitant]
     Active Substance: OMEPRAZOLE SODIUM
     Indication: ILL-DEFINED DISORDER
     Dosage: UNK
     Route: 065
  4. GABAPENTIN. [Suspect]
     Active Substance: GABAPENTIN
     Indication: DYSTONIA
     Dosage: 27 MILLIGRAM/KILOGRAM, (ACCIDENTALLY TOOK A 27MG/KG DOSE WHEN SUPPOSED TO TAKE A 9 MG/KG DOSE) TAKIN
     Route: 048
  5. MELATONIN [Concomitant]
     Active Substance: MELATONIN
     Indication: ILL-DEFINED DISORDER
     Dosage: UNK
     Route: 065

REACTIONS (3)
  - Hypoglycaemia [Recovered/Resolved]
  - Medication error [Unknown]
  - Off label use [Unknown]

NARRATIVE: CASE EVENT DATE: 20210725
